FAERS Safety Report 9376365 (Version 1)
Quarter: 2013Q3

REPORT INFORMATION
  Report Type: Report from Study
  Country: CA (occurrence: CA)
  Receive Date: 20130701
  Receipt Date: 20130701
  Transmission Date: 20140515
  Serious: Yes (Other)
  Sender: FDA-Public Use
  Company Number: CA-JNJFOC-20130613486

PATIENT
  Sex: Female
  Weight: 62.5 kg

DRUGS (2)
  1. REMICADE [Suspect]
     Indication: COLITIS ULCERATIVE
     Route: 042
     Dates: start: 20120504
  2. MEZAVANT [Concomitant]
     Route: 065

REACTIONS (2)
  - Anal fissure [Recovering/Resolving]
  - Haematochezia [Recovering/Resolving]
